FAERS Safety Report 7289968-6 (Version None)
Quarter: 2011Q1

REPORT INFORMATION
  Report Type: 
  Country: None (occurrence: None)
  Receive Date: 20110214
  Receipt Date: 20110201
  Transmission Date: 20110831
  Serious: No
  Sender: FDA-Public Use
  Company Number: US-ELI_LILLY_AND_COMPANY-US201011004155

PATIENT
  Sex: Female

DRUGS (4)
  1. SPIRIVA [Concomitant]
  2. FORTEO [Suspect]
     Indication: OSTEOPOROSIS
     Dosage: 20 UG, DAILY (1/D)
     Dates: start: 20101106, end: 20101110
  3. ALBUTEROL [Concomitant]
  4. ADVAIR DISKUS 100/50 [Concomitant]

REACTIONS (8)
  - HEADACHE [None]
  - OROPHARYNGEAL PAIN [None]
  - ASTHENIA [None]
  - NAUSEA [None]
  - DIZZINESS [None]
  - MALAISE [None]
  - DYSPNOEA [None]
  - NASOPHARYNGITIS [None]
